FAERS Safety Report 16847615 (Version 1)
Quarter: 2019Q3

REPORT INFORMATION
  Report Type: Spontaneous
  Country: ES (occurrence: ES)
  Receive Date: 20190924
  Receipt Date: 20190924
  Transmission Date: 20191005
  Serious: Yes (Other)
  Sender: FDA-Public Use
  Company Number: ES-ASTRAZENECA-2019SF33138

PATIENT
  Age: 3 Year
  Sex: Male
  Weight: 14 kg

DRUGS (5)
  1. OMEPRAZOL [Suspect]
     Active Substance: OMEPRAZOLE
     Indication: GASTROOESOPHAGEAL REFLUX DISEASE
     Route: 048
     Dates: start: 2019, end: 20190905
  2. VITATAMIN D3 [Concomitant]
     Indication: VITAMIN D
     Route: 048
  3. MOTILIUM [Concomitant]
     Active Substance: DOMPERIDONE
     Indication: REGURGITATION
     Route: 048
  4. DEPAKINE [Concomitant]
     Active Substance: VALPROATE SODIUM
     Indication: INFANTILE SPASMS
     Route: 048
  5. CASENLAX [Concomitant]
     Indication: CONSTIPATION
     Route: 048

REACTIONS (1)
  - Hypertrichosis [Recovering/Resolving]

NARRATIVE: CASE EVENT DATE: 201905
